FAERS Safety Report 25139533 (Version 1)
Quarter: 2025Q1

REPORT INFORMATION
  Report Type: Report from Study
  Country: CA (occurrence: CA)
  Receive Date: 20250331
  Receipt Date: 20250331
  Transmission Date: 20250409
  Serious: Yes (Hospitalization, Other)
  Sender: ALEXION PHARMACEUTICALS
  Company Number: CA-AstraZeneca-CH-00833194A

PATIENT

DRUGS (5)
  1. TEZEPELUMAB [Suspect]
     Active Substance: TEZEPELUMAB
     Indication: Asthma
  2. IPRATROPIUM [Concomitant]
     Active Substance: IPRATROPIUM
     Route: 065
  3. VENTOLIN [Concomitant]
     Active Substance: ALBUTEROL SULFATE
     Route: 065
  4. GLYCOPYRROLATE\INDACATEROL\MOMETASONE FUROATE [Concomitant]
     Active Substance: GLYCOPYRROLATE\INDACATEROL\MOMETASONE FUROATE
     Dosage: 160 MCG 1INH OD
     Route: 065
  5. FUROSEMIDE [Concomitant]
     Active Substance: FUROSEMIDE

REACTIONS (8)
  - Glomerular filtration rate decreased [Unknown]
  - Blood urea increased [Unknown]
  - Blood creatine increased [Unknown]
  - Renal impairment [Unknown]
  - Peripheral swelling [Unknown]
  - Dyspnoea [Unknown]
  - Renal disorder [Unknown]
  - Asthma [Unknown]
